FAERS Safety Report 9163730 (Version 1)
Quarter: 2013Q1

REPORT INFORMATION
  Report Type: Spontaneous
  Country: FR (occurrence: FR)
  Receive Date: 20130314
  Receipt Date: 20130314
  Transmission Date: 20140127
  Serious: Yes (Hospitalization, Other)
  Sender: FDA-Public Use
  Company Number: FR-ABBOTT-13P-056-1062126-00

PATIENT
  Age: 19 Year
  Sex: Male

DRUGS (1)
  1. HUMIRA [Suspect]
     Indication: CROHN^S DISEASE
     Dosage: LOADING DOSE 160 MG THEN 80MG THEN 40MG/EOW
     Route: 058
     Dates: start: 201210, end: 201301

REACTIONS (4)
  - Subileus [Unknown]
  - Abdominal pain lower [Unknown]
  - Colon neoplasm [Unknown]
  - Abscess intestinal [Unknown]
